FAERS Safety Report 17204073 (Version 2)
Quarter: 2020Q2

REPORT INFORMATION
  Report Type: Spontaneous
  Country: CN (occurrence: VN)
  Receive Date: 20191226
  Receipt Date: 20200629
  Transmission Date: 20200713
  Serious: No
  Sender: FDA-Public Use
  Company Number: CN-B.BRAUN MEDICAL INC.-2078209

PATIENT
  Sex: Female

DRUGS (1)
  1. SODIUM CHLORIDE INJECTION USP 0264-7800-09 [Suspect]
     Active Substance: SODIUM CHLORIDE

REACTIONS (2)
  - Tremor [Recovering/Resolving]
  - Feeling cold [Recovering/Resolving]
